FAERS Safety Report 8519096-0 (Version None)
Quarter: 2012Q3

REPORT INFORMATION
  Report Type: 
  Country: None (occurrence: None)
  Receive Date: 20120712
  Receipt Date: 20120712
  Transmission Date: 20120928
  Serious: Yes (Death, Hospitalization)
  Sender: FDA-Public Use
  Company Number: None

PATIENT
  Sex: Female
  Weight: 10.4 kg

DRUGS (4)
  1. FLUOROURACIL [Suspect]
     Dosage: 1233 MG
  2. DOXORUBICIN HYDROCHLORIDE [Suspect]
     Dosage: 124 MG
  3. VINCRISTINE SULFATE [Suspect]
     Dosage: 8.3 MG
  4. CISPLATIN [Suspect]
     Dosage: 205 MG

REACTIONS (1)
  - PSEUDOMONAS TEST POSITIVE [None]
